FAERS Safety Report 5046626-6 (Version None)
Quarter: 2006Q2

REPORT INFORMATION
  Report Type: 
  Country: None (occurrence: None)
  Receive Date: 20060630
  Receipt Date: 20060616
  Transmission Date: 20061013
  Serious: Yes (Death)
  Sender: FDA-Public Use
  Company Number: RENA-11805

PATIENT
  Age: 42 Year
  Sex: Male

DRUGS (8)
  1. RENAGEL [Suspect]
     Indication: HYPERPHOSPHATAEMIA
     Dosage: 2.4 G TID PO
     Route: 048
  2. ASPRIN [Concomitant]
  3. CLOPIDOGREL [Concomitant]
  4. HEPARIN (LOW MOLECULAR WEIGHT) [Concomitant]
  5. CALCICHEW [Concomitant]
  6. CALCITRIOL [Concomitant]
  7. PREDNISOLONE [Concomitant]
  8. CIPROFLOXACIN [Concomitant]

REACTIONS (6)
  - ABDOMINAL PAIN [None]
  - CARDIAC ARREST [None]
  - FAT NECROSIS [None]
  - HYPOTENSION [None]
  - INTESTINAL INFARCTION [None]
  - SMALL INTESTINAL PERFORATION [None]
